FAERS Safety Report 5589694-5 (Version None)
Quarter: 2008Q1

REPORT INFORMATION
  Report Type: 
  Country: None (occurrence: None)
  Receive Date: 20080114
  Receipt Date: 20080111
  Transmission Date: 20080703
  Serious: Yes (Death, Life-Threatening, Hospitalization)
  Sender: FDA-Public Use
  Company Number: B0493724A

PATIENT
  Age: 7 Year
  Sex: Male
  Weight: 16 kg

DRUGS (30)
  1. ALKERAN [Suspect]
     Indication: STEM CELL TRANSPLANT
     Dosage: 70MG PER DAY
     Route: 042
     Dates: start: 20070716, end: 20070717
  2. BUSULFAN [Suspect]
     Indication: STEM CELL TRANSPLANT
     Dosage: 1.1MGK FOUR TIMES PER DAY
     Route: 042
     Dates: start: 20070712, end: 20070715
  3. KEITEN [Suspect]
     Indication: HEPATIC FUNCTION ABNORMAL
     Dosage: 1.8G PER DAY
     Route: 042
     Dates: start: 20070724, end: 20070810
  4. GRAN [Concomitant]
     Indication: DRUG USE FOR UNKNOWN INDICATION
     Route: 042
     Dates: start: 20070724, end: 20070729
  5. FRAGMIN [Concomitant]
     Indication: DRUG USE FOR UNKNOWN INDICATION
     Route: 042
     Dates: start: 20070716, end: 20070914
  6. KYTRIL [Concomitant]
     Indication: DRUG USE FOR UNKNOWN INDICATION
     Route: 042
     Dates: start: 20070716, end: 20070718
  7. HYDROXYZINE [Concomitant]
     Indication: DRUG USE FOR UNKNOWN INDICATION
     Dates: start: 20070719, end: 20070728
  8. PRODIF [Concomitant]
     Indication: DRUG USE FOR UNKNOWN INDICATION
     Route: 042
     Dates: start: 20070718, end: 20070719
  9. HYDROCORTONE [Concomitant]
     Indication: DRUG USE FOR UNKNOWN INDICATION
     Route: 042
     Dates: start: 20070719, end: 20070729
  10. PENTAZOCINE LACTATE [Concomitant]
     Indication: DRUG USE FOR UNKNOWN INDICATION
     Dates: start: 20070719, end: 20071010
  11. FUROSEMIDE [Concomitant]
     Indication: DRUG USE FOR UNKNOWN INDICATION
     Dates: start: 20070727, end: 20071018
  12. MEROPEN [Concomitant]
     Indication: SEPSIS
     Dosage: 1.5MG PER DAY
     Route: 042
     Dates: start: 20070727, end: 20071008
  13. ASPARA K [Concomitant]
     Indication: DRUG USE FOR UNKNOWN INDICATION
     Route: 042
     Dates: start: 20070729
  14. THIAMYLAL SODIUM [Concomitant]
     Indication: DRUG USE FOR UNKNOWN INDICATION
     Dates: start: 20070813
  15. BOSMIN [Concomitant]
     Indication: DRUG USE FOR UNKNOWN INDICATION
     Route: 055
     Dates: start: 20070816, end: 20070816
  16. IMMUNE GLOBULIN INTRAVENOUS (HUMAN) [Concomitant]
     Indication: DRUG USE FOR UNKNOWN INDICATION
     Route: 042
     Dates: start: 20070816, end: 20070818
  17. MODACIN [Concomitant]
     Indication: SEPSIS
     Dosage: 1.5G PER DAY
     Route: 042
     Dates: start: 20070820, end: 20071021
  18. NEUART [Concomitant]
     Indication: DRUG USE FOR UNKNOWN INDICATION
     Route: 042
     Dates: start: 20070820, end: 20071001
  19. KAYTWO N [Concomitant]
     Indication: DRUG USE FOR UNKNOWN INDICATION
     Route: 042
     Dates: start: 20070820, end: 20071001
  20. GASTER [Concomitant]
     Indication: DRUG USE FOR UNKNOWN INDICATION
     Dates: start: 20070823, end: 20071019
  21. PANTOL [Concomitant]
     Indication: DRUG USE FOR UNKNOWN INDICATION
     Dates: start: 20070823
  22. ALBUMIN (HUMAN) [Concomitant]
     Indication: DRUG USE FOR UNKNOWN INDICATION
     Route: 042
     Dates: start: 20070824, end: 20071018
  23. INOVAN [Concomitant]
     Indication: DRUG USE FOR UNKNOWN INDICATION
     Route: 042
     Dates: start: 20070824
  24. GLYCYRRHIZIC ACID [Concomitant]
     Indication: DRUG USE FOR UNKNOWN INDICATION
     Dates: start: 20070827, end: 20070907
  25. CALCICOL [Concomitant]
     Indication: DRUG USE FOR UNKNOWN INDICATION
     Route: 042
     Dates: start: 20070830, end: 20070910
  26. GANCICLOVIR [Concomitant]
     Indication: PNEUMONIA CYTOMEGALOVIRAL
     Dosage: 150MG PER DAY
     Route: 042
     Dates: start: 20070927
  27. BACTRIM [Concomitant]
     Indication: PNEUMOCYSTIS JIROVECI PNEUMONIA
     Dosage: 15ML PER DAY
     Route: 042
     Dates: start: 20070927, end: 20071012
  28. FUNGUARD [Concomitant]
     Indication: PULMONARY MYCOSIS
     Dosage: 45MG PER DAY
     Route: 042
     Dates: start: 20070928, end: 20071015
  29. NEO-MINOPHAGEN-C [Concomitant]
     Route: 042
     Dates: start: 20070827, end: 20070907
  30. ATARAX [Concomitant]
     Dates: start: 20070719, end: 20070728

REACTIONS (12)
  - BLOOD PRESSURE DECREASED [None]
  - COUGH [None]
  - HEART RATE DECREASED [None]
  - HEPATIC FUNCTION ABNORMAL [None]
  - HYPERBILIRUBINAEMIA [None]
  - HYPOXIA [None]
  - INTERSTITIAL LUNG DISEASE [None]
  - OLIGURIA [None]
  - OXYGEN SATURATION DECREASED [None]
  - PULMONARY HYPERTENSION [None]
  - PYREXIA [None]
  - SHOCK [None]
